FAERS Safety Report 11615436 (Version 1)
Quarter: 2015Q4

REPORT INFORMATION
  Report Type: Spontaneous
  Country: US (occurrence: None)
  Receive Date: 20151008
  Receipt Date: 20151008
  Transmission Date: 20160304
  Serious: No
  Sender: FDA-Public Use
  Company Number: None

PATIENT
  Age: 25 Year
  Sex: Female

DRUGS (1)
  1. PARAGARD T 380A [Suspect]
     Active Substance: COPPER

REACTIONS (5)
  - Maternal exposure during pregnancy [None]
  - Malaise [None]
  - Device ineffective [None]
  - Pregnancy with contraceptive device [None]
  - Abortion induced [None]

NARRATIVE: CASE EVENT DATE: 20141230
